FAERS Safety Report 7506585 (Version 2)
Quarter: 2014Q4

REPORT INFORMATION
  Report Type: Report from Study
  Country: US (occurrence: US)
  Receive Date: 20100728
  Receipt Date: 20141213
  Transmission Date: 20150529
  Serious: Yes (Hospitalization, Other)
  Sender: FDA-Public Use
  Company Number: US-MILLENNIUM PHARMACEUTICALS, INC.-2010-03762

PATIENT
  Age: 71 Year
  Sex: Male
  Weight: 94.79 kg

DRUGS (3)
  1. VELCADE [Suspect]
     Active Substance: BORTEZOMIB
     Indication: PLASMA CELL MYELOMA
     Dosage: 2 MG, ON DAY 1, 4, 18 AND 11
     Route: 058
     Dates: start: 20100318, end: 20100408
  2. PREDNISONE. [Suspect]
     Active Substance: PREDNISONE
     Indication: PLASMA CELL MYELOMA
     Dosage: 120 MG, QD FOR 4 DAYS EVERY 6 WEEKS
     Route: 048
     Dates: start: 20100316, end: 20100319
  3. ALKERAN [Suspect]
     Active Substance: MELPHALAN
     Indication: PLASMA CELL MYELOMA
     Dosage: 18 MG, QD FOR 4 DAYS
     Route: 048
     Dates: start: 20100316, end: 20100319

REACTIONS (5)
  - Hypertrophic cardiomyopathy [Recovered/Resolved]
  - Anaemia [Recovered/Resolved]
  - Gastrointestinal haemorrhage [Recovered/Resolved]
  - Hypotension [Recovered/Resolved]
  - Dizziness [Recovered/Resolved]

NARRATIVE: CASE EVENT DATE: 20100331
